FAERS Safety Report 7865204-4 (Version None)
Quarter: 2011Q4

REPORT INFORMATION
  Report Type: 
  Country: None (occurrence: None)
  Receive Date: 20111028
  Receipt Date: 20101029
  Transmission Date: 20120403
  Serious: No
  Sender: FDA-Public Use
  Company Number: US-GLAXOSMITHKLINE-A0889733A

PATIENT
  Age: 78 Year
  Sex: Female

DRUGS (9)
  1. ACTOS [Concomitant]
  2. LEVOTHYROXINE SODIUM [Concomitant]
  3. WARFARIN SODIUM [Concomitant]
  4. METFORMIN HCL [Concomitant]
  5. UNKNOWN MEDICATION [Concomitant]
  6. TRICOR [Concomitant]
  7. ADVAIR DISKUS 100/50 [Suspect]
     Indication: CHRONIC OBSTRUCTIVE PULMONARY DISEASE
     Dosage: 1PUFF TWICE PER DAY
     Route: 055
     Dates: start: 20101003
  8. CRESTOR [Concomitant]
  9. METOPROLOL TARTRATE [Concomitant]

REACTIONS (1)
  - OROPHARYNGEAL DISCOMFORT [None]
